FAERS Safety Report 20333996 (Version 1)
Quarter: 2022Q1

REPORT INFORMATION
  Report Type: Spontaneous
  Country: US (occurrence: US)
  Receive Date: 20220113
  Receipt Date: 20220113
  Transmission Date: 20220424
  Serious: No
  Sender: FDA-Public Use
  Company Number: US-009507513-2201USA001960

PATIENT
  Sex: Female

DRUGS (4)
  1. KEYTRUDA [Suspect]
     Active Substance: PEMBROLIZUMAB
     Indication: Endometrial cancer metastatic
     Dosage: UNK
  2. LENVATINIB MESYLATE [Suspect]
     Active Substance: LENVATINIB MESYLATE
     Indication: Endometrial cancer metastatic
     Dosage: 20 MILLIGRAM, DAILY
     Route: 048
     Dates: start: 20211206, end: 20211208
  3. LENVATINIB MESYLATE [Suspect]
     Active Substance: LENVATINIB MESYLATE
     Dosage: 20 MILLIGRAM, DAILY
     Route: 048
     Dates: start: 20211211
  4. AMLODIPINE [Concomitant]
     Active Substance: AMLODIPINE BESYLATE

REACTIONS (3)
  - Blood pressure increased [Recovering/Resolving]
  - Arthralgia [Unknown]
  - Urticaria [Unknown]

NARRATIVE: CASE EVENT DATE: 20211201
